FAERS Safety Report 5145182-1 (Version None)
Quarter: 2006Q4

REPORT INFORMATION
  Report Type: 
  Country: None (occurrence: None)
  Receive Date: 20061107
  Receipt Date: 20050706
  Transmission Date: 20070319
  Serious: Yes (Hospitalization)
  Sender: FDA-Public Use
  Company Number: 2005UW10097

PATIENT
  Age: 69 Year
  Sex: Male
  Weight: 84.8 kg

DRUGS (4)
  1. SEROQUEL [Suspect]
     Indication: BIPOLAR I DISORDER
     Route: 048
     Dates: start: 20040101
  2. VALIUM [Concomitant]
  3. STELAZINE [Concomitant]
  4. ASPIRIN [Concomitant]

REACTIONS (13)
  - AGITATION [None]
  - AMNESIA [None]
  - ANAPHYLACTIC SHOCK [None]
  - BLINDNESS [None]
  - BLOOD COUNT ABNORMAL [None]
  - BLOOD POTASSIUM DECREASED [None]
  - DEAFNESS [None]
  - DIZZINESS [None]
  - DRY MOUTH [None]
  - FATIGUE [None]
  - FEELING DRUNK [None]
  - HEART RATE DECREASED [None]
  - SHOCK [None]
